FAERS Safety Report 5399488-1 (Version None)
Quarter: 2007Q3

REPORT INFORMATION
  Report Type: 
  Country: None (occurrence: None)
  Receive Date: 20070727
  Receipt Date: 20070712
  Transmission Date: 20080115
  Serious: Yes (Other)
  Sender: FDA-Public Use
  Company Number: US-PFIZER INC-2006105724

PATIENT
  Sex: Male
  Weight: 99.8 kg

DRUGS (4)
  1. CELEBREX [Suspect]
     Indication: INFLAMMATION
  2. BEXTRA [Suspect]
     Indication: LIMB INJURY
     Dosage: TEXT:10MG + 20MG
  3. BEXTRA [Suspect]
     Indication: BACK INJURY
  4. VIOXX [Suspect]
     Indication: PAIN
     Dates: start: 20020102

REACTIONS (4)
  - DEEP VEIN THROMBOSIS [None]
  - HYPERCOAGULATION [None]
  - MYOCARDIAL INFARCTION [None]
  - TRANSIENT ISCHAEMIC ATTACK [None]
